FAERS Safety Report 4279990-6 (Version None)
Quarter: 2004Q1

REPORT INFORMATION
  Report Type: 
  Country: None (occurrence: None)
  Receive Date: 20040121
  Receipt Date: 20030613
  Transmission Date: 20041129
  Serious: Yes (Hospitalization)
  Sender: FDA-Public Use
  Company Number: 2003-06-1501

PATIENT
  Age: 46 Year
  Sex: Male

DRUGS (4)
  1. VIRAFERONPEG [Suspect]
     Indication: HEPATITIS C
     Dosage: 1.5 MCG/KG/WK
     Route: 058
     Dates: start: 20021001
  2. REBETOL [Suspect]
     Indication: HEPATITIS C
     Route: 048
     Dates: start: 20021001
  3. SUBUTEX [Suspect]
     Dosage: 2 MG
     Route: 048
     Dates: start: 20021001
  4. MANTADIX CAPSULES   LOT NO: [Suspect]
     Indication: HEPATITIS C
     Route: 048
     Dates: start: 20021001

REACTIONS (2)
  - DELUSION [None]
  - SUICIDE ATTEMPT [None]
